FAERS Safety Report 8707976 (Version 2)
Quarter: 2012Q4

REPORT INFORMATION
  Report Type: Spontaneous
  Country: FR (occurrence: None)
  Receive Date: 20120717
  Receipt Date: 20120921
  Transmission Date: 20130627
  Serious: Yes (Hospitalization)
  Sender: FDA-Public Use
  Company Number: LU-SEPTODONT-201200684

PATIENT
  Age: 60 Year
  Sex: Female

DRUGS (1)
  1. SCANDONEST PLAIN [Suspect]
     Indication: LOCAL ANAESTHESIA
     Route: 004
     Dates: start: 20120321, end: 20120321

REACTIONS (7)
  - Chest discomfort [None]
  - Dyspnoea [None]
  - Malaise [None]
  - Paraesthesia [None]
  - Pulse pressure decreased [None]
  - Confusional state [None]
  - Amnesia [None]
